FAERS Safety Report 12929759 (Version 1)
Quarter: 2016Q4

REPORT INFORMATION
  Report Type: Spontaneous
  Country: DK (occurrence: DK)
  Receive Date: 20161110
  Receipt Date: 20161110
  Transmission Date: 20170207
  Serious: Yes (Hospitalization, Other)
  Sender: FDA-Public Use
  Company Number: DK-BAYER-2016-087740

PATIENT
  Age: 36 Year
  Sex: Female

DRUGS (1)
  1. JAYDESS [Suspect]
     Active Substance: LEVONORGESTREL
     Dosage: 14 MCG/24HR, CONT
     Route: 015
     Dates: start: 201410

REACTIONS (3)
  - Pregnancy with contraceptive device [Unknown]
  - Device dislocation [Unknown]
  - Abortion induced [Unknown]

NARRATIVE: CASE EVENT DATE: 2016
